FAERS Safety Report 23404320 (Version 1)
Quarter: 2024Q1

REPORT INFORMATION
  Report Type: Spontaneous
  Country: ZA (occurrence: None)
  Receive Date: 20240116
  Receipt Date: 20240116
  Transmission Date: 20240410
  Serious: Yes (Hospitalization)
  Sender: FDA-Public Use
  Company Number: 2024A009222

PATIENT
  Age: 18262 Day
  Sex: Female

DRUGS (4)
  1. DAPAGLIFLOZIN [Suspect]
     Active Substance: DAPAGLIFLOZIN
     Route: 048
  2. GLICLAZIDE [Concomitant]
     Active Substance: GLICLAZIDE
  3. SPIRACTIN [Concomitant]
  4. VILDAGLIPTIN [Concomitant]
     Active Substance: VILDAGLIPTIN

REACTIONS (4)
  - Malaise [Unknown]
  - Haemoglobin decreased [Unknown]
  - Blood iron decreased [Unknown]
  - Internal haemorrhage [Unknown]
